FAERS Safety Report 6912084-7 (Version None)
Quarter: 2010Q3

REPORT INFORMATION
  Report Type: 
  Country: None (occurrence: None)
  Receive Date: 20100806
  Receipt Date: 20071020
  Transmission Date: 20110219
  Serious: No
  Sender: FDA-Public Use
  Company Number: US-PFIZER INC-2007088949

PATIENT
  Sex: Female
  Weight: 45.454 kg

DRUGS (8)
  1. DETROL LA [Suspect]
     Indication: HYPERTONIC BLADDER
     Dates: start: 20070901, end: 20071019
  2. TOPROL-XL [Concomitant]
  3. VERAPAMIL [Concomitant]
  4. DYAZIDE [Concomitant]
  5. LIPITOR [Concomitant]
  6. CALCIUM WITH VITAMIN D [Concomitant]
  7. IBANDRONATE SODIUM [Concomitant]
  8. SUPER VITAMIN B COMPLEX [Concomitant]

REACTIONS (2)
  - POLLAKIURIA [None]
  - VISION BLURRED [None]
